FAERS Safety Report 18381764 (Version 1)
Quarter: 2020Q4

REPORT INFORMATION
  Report Type: Spontaneous
  Country: US (occurrence: US)
  Receive Date: 20201013
  Receipt Date: 20201013
  Transmission Date: 20210114
  Serious: Yes (Other)
  Sender: FDA-Public Use
  Company Number: None

PATIENT
  Age: 32 Year
  Sex: Female
  Weight: 77.85 kg

DRUGS (3)
  1. EMGALITY [Suspect]
     Active Substance: GALCANEZUMAB-GNLM
     Indication: VESTIBULAR MIGRAINE
     Dosage: ?          QUANTITY:2 INJECTION(S);OTHER FREQUENCY:EVERY 30 DAYS;OTHER ROUTE:INJECTION TO STOMACH?
     Dates: start: 20201008, end: 20201009
  2. DEPO-PROVERA [Concomitant]
     Active Substance: MEDROXYPROGESTERONE ACETATE
  3. METOPROLOL. [Concomitant]
     Active Substance: METOPROLOL

REACTIONS (5)
  - Influenza like illness [None]
  - Oropharyngeal pain [None]
  - Dysphonia [None]
  - Chest discomfort [None]
  - Wheezing [None]

NARRATIVE: CASE EVENT DATE: 20201009
